FAERS Safety Report 24412273 (Version 2)
Quarter: 2024Q4

REPORT INFORMATION
  Report Type: Spontaneous
  Country: ES (occurrence: ES)
  Receive Date: 20241008
  Receipt Date: 20241016
  Transmission Date: 20250115
  Serious: Yes (Hospitalization, Other)
  Sender: SANOFI AVENTIS
  Company Number: ES-EMA-DD-20180104-sandevhp-171525

PATIENT
  Age: 64 Year
  Sex: Male

DRUGS (12)
  1. AFLIBERCEPT [Suspect]
     Active Substance: AFLIBERCEPT
     Indication: Rectosigmoid cancer stage IV
     Dosage: UNK UNK, QCY
  2. AFLIBERCEPT [Suspect]
     Active Substance: AFLIBERCEPT
     Indication: Metastases to liver
  3. AFLIBERCEPT [Suspect]
     Active Substance: AFLIBERCEPT
     Indication: Metastases to rectum
  4. LEUCOVORIN CALCIUM [Suspect]
     Active Substance: LEUCOVORIN CALCIUM
     Indication: Rectosigmoid cancer stage IV
     Dosage: UNK UNK, QCY
  5. LEUCOVORIN CALCIUM [Suspect]
     Active Substance: LEUCOVORIN CALCIUM
     Indication: Metastases to liver
  6. LEUCOVORIN CALCIUM [Suspect]
     Active Substance: LEUCOVORIN CALCIUM
     Indication: Metastases to rectum
  7. FLUOROURACIL [Suspect]
     Active Substance: FLUOROURACIL
     Indication: Rectosigmoid cancer stage IV
     Dosage: UNK, QCY
  8. FLUOROURACIL [Suspect]
     Active Substance: FLUOROURACIL
     Indication: Metastases to liver
  9. FLUOROURACIL [Suspect]
     Active Substance: FLUOROURACIL
     Indication: Metastases to rectum
  10. IRINOTECAN [Suspect]
     Active Substance: IRINOTECAN
     Indication: Rectosigmoid cancer stage IV
     Dosage: UNK UNK, QCY
  11. IRINOTECAN [Suspect]
     Active Substance: IRINOTECAN
     Indication: Metastases to liver
  12. IRINOTECAN [Suspect]
     Active Substance: IRINOTECAN
     Indication: Metastases to rectum

REACTIONS (10)
  - Fournier^s gangrene [Recovering/Resolving]
  - Renal failure [Recovering/Resolving]
  - Pyrexia [Recovering/Resolving]
  - Musculoskeletal pain [Recovering/Resolving]
  - Inflammation [Recovering/Resolving]
  - Chills [Recovering/Resolving]
  - Tachycardia [Recovering/Resolving]
  - Erythema induratum [Recovering/Resolving]
  - Leukocytosis [Recovering/Resolving]
  - Neutrophilia [Recovering/Resolving]
